FAERS Safety Report 25009491 (Version 1)
Quarter: 2025Q1

REPORT INFORMATION
  Report Type: Spontaneous
  Country: US (occurrence: US)
  Receive Date: 20250225
  Receipt Date: 20250225
  Transmission Date: 20250408
  Serious: Yes (Other)
  Sender: RANBAXY
  Company Number: US-SUN PHARMACEUTICAL INDUSTRIES LTD-2025R1-495479

PATIENT
  Age: 40 Year
  Sex: Female

DRUGS (6)
  1. ACETAZOLAMIDE [Suspect]
     Active Substance: ACETAZOLAMIDE
     Indication: Choroidal neovascularisation
     Route: 048
  2. PREDNISONE [Suspect]
     Active Substance: PREDNISONE
     Indication: Choroidal neovascularisation
     Route: 065
  3. KETOROLAC [Suspect]
     Active Substance: KETOROLAC TROMETHAMINE
     Indication: Choroidal neovascularisation
     Route: 061
  4. AFLIBERCEPT [Suspect]
     Active Substance: AFLIBERCEPT
     Indication: Choroidal neovascularisation
  5. BEVACIZUMAB [Suspect]
     Active Substance: BEVACIZUMAB
     Indication: Choroidal neovascularisation
  6. EPLERENONE [Suspect]
     Active Substance: EPLERENONE
     Indication: Choroidal neovascularisation
     Route: 048

REACTIONS (2)
  - Therapy non-responder [Unknown]
  - Condition aggravated [Unknown]
